FAERS Safety Report 7512960-0 (Version None)
Quarter: 2011Q2

REPORT INFORMATION
  Report Type: 
  Country: None (occurrence: None)
  Receive Date: 20110531
  Receipt Date: 20101204
  Transmission Date: 20111010
  Serious: No
  Sender: FDA-Public Use
  Company Number: US-NOVEN-ALL1-2010-06335

PATIENT
  Sex: Female
  Weight: 36.281 kg

DRUGS (2)
  1. DAYTRANA [Suspect]
     Dosage: 20 MG, 1X/DAY:QD
     Route: 062
     Dates: start: 20090101
  2. ZOLOFT [Concomitant]
     Dosage: UNK MG, 1X/DAY:QD
     Route: 048

REACTIONS (1)
  - APPLICATION SITE ERYTHEMA [None]
